FAERS Safety Report 24718053 (Version 1)
Quarter: 2024Q4

REPORT INFORMATION
  Report Type: Spontaneous
  Country: US (occurrence: US)
  Receive Date: 20241210
  Receipt Date: 20241210
  Transmission Date: 20250115
  Serious: Yes (Other)
  Sender: ITALFARMACO SPA
  Company Number: US-ITALFARMACO SPA-2166836

PATIENT
  Sex: Male

DRUGS (1)
  1. GIVINOSTAT [Suspect]
     Active Substance: GIVINOSTAT

REACTIONS (1)
  - Thrombocytopenia [Unknown]
